FAERS Safety Report 8354554-3 (Version None)
Quarter: 2012Q2

REPORT INFORMATION
  Report Type: 
  Country: None (occurrence: None)
  Receive Date: 20120510
  Receipt Date: 20120430
  Transmission Date: 20120825
  Serious: Yes (Other)
  Sender: FDA-Public Use
  Company Number: 9039997-2012-00001

PATIENT
  Sex: Female

DRUGS (1)
  1. LEVULAN [Suspect]
     Indication: ACTINIC KERATOSIS
     Dosage: 20 PERCENT,ONCE,TOPICAL
     Route: 061
     Dates: start: 20120201

REACTIONS (12)
  - EYE DISCHARGE [None]
  - APPLICATION SITE VESICLES [None]
  - APPLICATION SITE EXFOLIATION [None]
  - APPLICATION SITE ERYTHEMA [None]
  - EYE SWELLING [None]
  - ORAL MUCOSAL BLISTERING [None]
  - GINGIVAL SWELLING [None]
  - APPLICATION SITE URTICARIA [None]
  - DRY EYE [None]
  - EYE PAIN [None]
  - APPLICATION SITE SWELLING [None]
  - OCULAR HYPERAEMIA [None]
